FAERS Safety Report 5064207-5 (Version None)
Quarter: 2006Q3

REPORT INFORMATION
  Report Type: 
  Country: None (occurrence: None)
  Receive Date: 20060728
  Receipt Date: 20051128
  Transmission Date: 20061208
  Serious: No
  Sender: FDA-Public Use
  Company Number: A0584821A

PATIENT
  Age: 74 Year
  Sex: Female

DRUGS (3)
  1. ZANTAC [Suspect]
     Dosage: 250MG PER DAY
     Route: 048
     Dates: end: 20051019
  2. THYROID TAB [Concomitant]
     Route: 048
  3. ALTREN [Concomitant]
     Route: 065

REACTIONS (2)
  - HYPERCHLORHYDRIA [None]
  - PRODUCTIVE COUGH [None]
